FAERS Safety Report 25985874 (Version 1)
Quarter: 2025Q4

REPORT INFORMATION
  Report Type: Spontaneous
  Country: US (occurrence: None)
  Receive Date: 20251031
  Receipt Date: 20251031
  Transmission Date: 20260118
  Serious: Yes (Hospitalization, Other)
  Sender: UCB
  Company Number: US-UCBSA-2025067363

PATIENT

DRUGS (1)
  1. BIMZELX [Suspect]
     Active Substance: BIMEKIZUMAB-BKZX
     Indication: Product used for unknown indication
     Dosage: UNK

REACTIONS (5)
  - Diabetes mellitus [Unknown]
  - Abscess [Unknown]
  - Condition aggravated [Unknown]
  - Oral candidiasis [Unknown]
  - Genital candidiasis [Unknown]
